FAERS Safety Report 11684827 (Version 1)
Quarter: 2015Q4

REPORT INFORMATION
  Report Type: Spontaneous
  Country: US (occurrence: US)
  Receive Date: 20151029
  Receipt Date: 20151029
  Transmission Date: 20160304
  Serious: Yes (Other)
  Sender: FDA-Public Use
  Company Number: US-ROCHE-ITM201503IM011320

PATIENT
  Sex: Male

DRUGS (13)
  1. VITAMIN D3 [Concomitant]
     Active Substance: CHOLECALCIFEROL
  2. IBUPROFEN. [Concomitant]
     Active Substance: IBUPROFEN
  3. IPRATROPIUM BROMIDE. [Concomitant]
     Active Substance: IPRATROPIUM BROMIDE
  4. VITAMIN C [Concomitant]
     Active Substance: ASCORBIC ACID
  5. MONTELUKAST [Concomitant]
     Active Substance: MONTELUKAST SODIUM
  6. ESBRIET [Suspect]
     Active Substance: PIRFENIDONE
     Indication: IDIOPATHIC PULMONARY FIBROSIS
     Dosage: 3 CAP TID
     Route: 048
  7. LORAZEPAM. [Concomitant]
     Active Substance: LORAZEPAM
  8. ASPIRIN. [Concomitant]
     Active Substance: ASPIRIN
  9. ESBRIET [Suspect]
     Active Substance: PIRFENIDONE
     Dosage: 3 CAP TID
     Route: 048
     Dates: start: 20150407
  10. LOSARTAN. [Concomitant]
     Active Substance: LOSARTAN
  11. PRAVASTATIN [Concomitant]
     Active Substance: PRAVASTATIN\PRAVASTATIN SODIUM
  12. PANTOPRAZOLE [Concomitant]
     Active Substance: PANTOPRAZOLE SODIUM
  13. CARVEDILOL. [Concomitant]
     Active Substance: CARVEDILOL
     Route: 065

REACTIONS (6)
  - Nausea [Unknown]
  - Anxiety [Not Recovered/Not Resolved]
  - Decreased appetite [Unknown]
  - Gastric disorder [Not Recovered/Not Resolved]
  - Astigmatism [Not Recovered/Not Resolved]
  - Dizziness [Unknown]
